FAERS Safety Report 8247779-9 (Version None)
Quarter: 2012Q1

REPORT INFORMATION
  Report Type: 
  Country: None (occurrence: None)
  Receive Date: 20120330
  Receipt Date: 20120322
  Transmission Date: 20120608
  Serious: Yes (Other)
  Sender: FDA-Public Use
  Company Number: US-JNJFOC-20120313337

PATIENT
  Age: 71 Year
  Sex: Female

DRUGS (11)
  1. FENTANYL [Suspect]
     Indication: PRODUCT USED FOR UNKNOWN INDICATION
     Route: 062
  2. ALLEGRA [Concomitant]
     Indication: PROPHYLAXIS
     Route: 048
     Dates: start: 20110818
  3. ZYRTEC [Concomitant]
     Indication: URTICARIA
     Route: 065
  4. CINRYZE [Concomitant]
     Indication: PROPHYLAXIS
     Dosage: AS NEEDED
     Route: 042
     Dates: start: 20110812
  5. BENADRYL [Concomitant]
     Dosage: AS NEEDED
     Route: 042
  6. FENTANYL [Suspect]
     Route: 062
  7. CINRYZE [Concomitant]
     Dosage: EVERY 3 TO 4 HOURS
     Route: 042
  8. BENADRYL [Concomitant]
     Indication: PROPHYLAXIS
     Route: 042
     Dates: start: 20110816, end: 20110816
  9. EPIPEN [Concomitant]
     Indication: SWELLING
     Route: 065
     Dates: start: 20110812
  10. RANITIDINE [Concomitant]
     Indication: PROPHYLAXIS
     Route: 048
     Dates: start: 20110812
  11. AMLODIPINE [Concomitant]
     Indication: PRODUCT USED FOR UNKNOWN INDICATION
     Route: 065
     Dates: start: 20110701

REACTIONS (1)
  - ANAPHYLACTIC REACTION [None]
